FAERS Safety Report 6465241-0 (Version None)
Quarter: 2009Q4

REPORT INFORMATION
  Report Type: 
  Country: None (occurrence: None)
  Receive Date: 20091119
  Receipt Date: 20090916
  Transmission Date: 20100525
  Serious: No
  Sender: FDA-Public Use
  Company Number: WAES 0909USA02127

PATIENT
  Age: 68 Year
  Sex: Female

DRUGS (3)
  1. JANUVIA [Suspect]
     Indication: TYPE 2 DIABETES MELLITUS
     Dosage: PO
     Route: 048
     Dates: start: 20070901, end: 20090901
  2. SINGULAIR [Suspect]
     Dosage: PO
     Route: 048
  3. METFORMIN HCL [Concomitant]

REACTIONS (2)
  - CARDIOMEGALY [None]
  - DYSPNOEA [None]
